FAERS Safety Report 24000780 (Version 3)
Quarter: 2024Q3

REPORT INFORMATION
  Report Type: Spontaneous
  Country: ES (occurrence: None)
  Receive Date: 20240621
  Receipt Date: 20240709
  Transmission Date: 20241017
  Serious: Yes (Other)
  Sender: ASTRAZENECA
  Company Number: 2024A143234

PATIENT
  Age: 47 Year
  Sex: Female

DRUGS (2)
  1. OLAPARIB [Suspect]
     Active Substance: OLAPARIB
     Indication: Triple negative breast cancer
     Dosage: 300 MILLIGRAM, TWICE A DAY (BID)
     Route: 048
     Dates: start: 202010, end: 202112
  2. OLAPARIB [Suspect]
     Active Substance: OLAPARIB
     Indication: Triple negative breast cancer
     Dosage: 300 MILLIGRAM, TWICE A DAY (BID)
     Route: 048
     Dates: start: 202010, end: 202112

REACTIONS (4)
  - Breast cancer [Unknown]
  - Metastases to peripheral nervous system [Unknown]
  - Supportive care [Unknown]
  - Therapy partial responder [Unknown]

NARRATIVE: CASE EVENT DATE: 20220501
